FAERS Safety Report 21739449 (Version 1)
Quarter: 2022Q4

REPORT INFORMATION
  Report Type: Other
  Country: CA (occurrence: CA)
  Receive Date: 20221216
  Receipt Date: 20221216
  Transmission Date: 20230112
  Serious: Yes (Death, Other)
  Sender: FDA-Public Use
  Company Number: CA-APOTEX-2022AP016618

PATIENT
  Age: 62 Year
  Sex: Male

DRUGS (1)
  1. DASATINIB [Suspect]
     Active Substance: DASATINIB
     Indication: Leukaemia
     Dosage: 20 MILLIGRAM, QD
     Route: 048
     Dates: start: 20200112

REACTIONS (1)
  - Death [Fatal]

NARRATIVE: CASE EVENT DATE: 20220601
